FAERS Safety Report 13782394 (Version 1)
Quarter: 2017Q3

REPORT INFORMATION
  Report Type: Spontaneous
  Country: US (occurrence: US)
  Receive Date: 20170724
  Receipt Date: 20170724
  Transmission Date: 20171127
  Serious: No
  Sender: FDA-Public Use
  Company Number: US-PRINSTON PHARMACEUTICAL INC.-2017PRN00072

PATIENT
  Sex: Female
  Weight: 58.96 kg

DRUGS (4)
  1. DONEPEZIL HYDROCHLORIDE. [Suspect]
     Active Substance: DONEPEZIL HYDROCHLORIDE
     Indication: DEMENTIA ALZHEIMER^S TYPE
     Dosage: 10 MG, 2X/DAY
     Dates: start: 2012
  2. OTHER UNSPECIFIED MEDICATIONS [Concomitant]
     Active Substance: UNSPECIFIED INGREDIENT
  3. DONEPEZIL HYDROCHLORIDE. [Suspect]
     Active Substance: DONEPEZIL HYDROCHLORIDE
     Dosage: 20 MG, 1X/DAY
     Route: 048
     Dates: start: 2012
  4. NAMENDA XR [Concomitant]
     Active Substance: MEMANTINE HYDROCHLORIDE

REACTIONS (2)
  - Dysphagia [Not Recovered/Not Resolved]
  - Cognitive disorder [Not Recovered/Not Resolved]

NARRATIVE: CASE EVENT DATE: 2016
